FAERS Safety Report 22295711 (Version 1)
Quarter: 2023Q2

REPORT INFORMATION
  Report Type: Report from Study
  Country: US (occurrence: US)
  Receive Date: 20230508
  Receipt Date: 20230508
  Transmission Date: 20230721
  Serious: No
  Sender: FDA-Public Use
  Company Number: US-BIOVITRUM-2023-US-010297

PATIENT
  Age: 59 Year
  Sex: Female

DRUGS (1)
  1. KINERET [Suspect]
     Active Substance: ANAKINRA
     Indication: Rheumatoid arthritis
     Dosage: 100 MG DAILY
     Route: 058
     Dates: start: 20230328

REACTIONS (5)
  - Injection site urticaria [Unknown]
  - Injection site warmth [Unknown]
  - Injection site pruritus [Unknown]
  - Nausea [Unknown]
  - Injection site discolouration [Unknown]
